FAERS Safety Report 5938660-6 (Version None)
Quarter: 2008Q4

REPORT INFORMATION
  Report Type: 
  Country: None (occurrence: None)
  Receive Date: 20081103
  Receipt Date: 20081023
  Transmission Date: 20090506
  Serious: Yes (Hospitalization)
  Sender: FDA-Public Use
  Company Number: JP-ROCHE-586008

PATIENT
  Sex: Male
  Weight: 64 kg

DRUGS (6)
  1. ROCEPHIN [Suspect]
     Indication: ENDOCARDITIS
     Route: 041
     Dates: start: 20080710, end: 20080712
  2. ROCEPHIN [Suspect]
     Route: 041
     Dates: start: 20080713, end: 20080824
  3. LOXONIN [Concomitant]
     Dosage: TAKEN AS NEEDED
     Route: 048
     Dates: start: 20080627, end: 20080715
  4. SELBEX [Concomitant]
     Dosage: TAKEN AS NEEDED
     Route: 048
     Dates: start: 20080627, end: 20080715
  5. DIAZEPAM [Concomitant]
     Dosage: ROUTE: INTRAVENOUS (NOT OTHERWISE SPECIFIED)
     Route: 042
     Dates: start: 20080710, end: 20080710
  6. DIAZEPAM [Concomitant]
     Dosage: ROUTE: INTRAVENOUS (NOT OTHERWISE SPECIFIED)
     Route: 042
     Dates: start: 20080814, end: 20080814

REACTIONS (1)
  - CHOLELITHIASIS [None]
